FAERS Safety Report 4999467-X (Version None)
Quarter: 2006Q2

REPORT INFORMATION
  Report Type: 
  Country: None (occurrence: None)
  Receive Date: 20060510
  Receipt Date: 20060510
  Transmission Date: 20061013
  Serious: Yes (Life-Threatening, Hospitalization)
  Sender: FDA-Public Use
  Company Number: None

PATIENT
  Age: 83 Year
  Sex: Female
  Weight: 42.3 kg

DRUGS (9)
  1. HEPARIN [Suspect]
     Dates: start: 20060207, end: 20060209
  2. ALBUTEROL SULFATE AND IPRATROPIUM BROMIDE [Concomitant]
  3. LORAZEPAM [Concomitant]
  4. TELMISARTAN [Concomitant]
  5. FUROSEMIDE [Concomitant]
  6. MONTELUKAST [Concomitant]
  7. NITROGLYCERIN [Concomitant]
  8. CALCIUM GLUCONATE [Concomitant]
  9. VITAMIN [Concomitant]

REACTIONS (4)
  - CREATININE RENAL CLEARANCE DECREASED [None]
  - DEEP VEIN THROMBOSIS [None]
  - HEPARIN-INDUCED THROMBOCYTOPENIA [None]
  - PULMONARY EMBOLISM [None]
